FAERS Safety Report 13165438 (Version 2)
Quarter: 2017Q1

REPORT INFORMATION
  Report Type: Spontaneous
  Country: US (occurrence: US)
  Receive Date: 20170131
  Receipt Date: 20170216
  Transmission Date: 20170428
  Serious: Yes (Other)
  Sender: FDA-Public Use
  Company Number: US-AMGEN-USASP2017013263

PATIENT
  Age: 73 Year
  Sex: Female

DRUGS (1)
  1. SENSIPAR [Suspect]
     Active Substance: CINACALCET HYDROCHLORIDE
     Indication: HYPERPARATHYROIDISM PRIMARY
     Dosage: 30 MG, QD
     Route: 048

REACTIONS (7)
  - Hypercalcaemia [Unknown]
  - Malaise [Unknown]
  - Osteoporosis [Unknown]
  - Anaemia [Unknown]
  - Throat cancer [Unknown]
  - Nausea [Unknown]
  - Vomiting [Unknown]
